FAERS Safety Report 14945491 (Version 2)
Quarter: 2018Q2

REPORT INFORMATION
  Report Type: Spontaneous
  Country: FR (occurrence: FR)
  Receive Date: 20180529
  Receipt Date: 20180611
  Transmission Date: 20180711
  Serious: Yes (Hospitalization)
  Sender: FDA-Public Use
  Company Number: FR-AUROBINDO-AUR-APL-2018-027487

PATIENT
  Age: 27 Year
  Sex: Male
  Weight: 77 kg

DRUGS (4)
  1. ZAMUDOL [Suspect]
     Active Substance: TRAMADOL HYDROCHLORIDE
     Indication: PRODUCT USED FOR UNKNOWN INDICATION
     Dosage: 2 DOSAGE FORM, ONCE A DAY
     Route: 048
     Dates: start: 20180415, end: 20180424
  2. COLCHICINE OPOCALCIUM [Suspect]
     Active Substance: COLCHICINE
     Indication: PERICARDITIS
     Dosage: 2 MILLIGRAM, ONCE A DAY
     Route: 048
     Dates: start: 20180415
  3. PARACETAMOL [Suspect]
     Active Substance: ACETAMINOPHEN
     Indication: PRODUCT USED FOR UNKNOWN INDICATION
     Dosage: ()
     Route: 048
     Dates: start: 20180415
  4. AMOXICILLINE PANPHARMA [Suspect]
     Active Substance: AMOXICILLIN
     Indication: STREPTOCOCCAL INFECTION
     Dosage: 3 GRAM, ONCE A DAY
     Route: 042
     Dates: start: 20180417, end: 20180425

REACTIONS (1)
  - Transaminases increased [Recovered/Resolved]

NARRATIVE: CASE EVENT DATE: 20180423
